FAERS Safety Report 10188138 (Version 1)
Quarter: 2014Q2

REPORT INFORMATION
  Report Type: Spontaneous
  Country: US (occurrence: US)
  Receive Date: 20140522
  Receipt Date: 20140522
  Transmission Date: 20141212
  Serious: No
  Sender: FDA-Public Use
  Company Number: US-SA-2013SA101503

PATIENT
  Age: 41 Year
  Sex: Male

DRUGS (4)
  1. LANTUS SOLOSTAR [Suspect]
     Dosage: DOSE:100 UNIT(S)
     Route: 051
  2. SOLOSTAR [Concomitant]
     Route: 065
  3. HUMALOG [Concomitant]
  4. TESTOSTERONE [Concomitant]

REACTIONS (1)
  - Malaise [Not Recovered/Not Resolved]
